FAERS Safety Report 5565946-X (Version None)
Quarter: 2007Q4

REPORT INFORMATION
  Report Type: 
  Country: None (occurrence: None)
  Receive Date: 20071219
  Receipt Date: 20071213
  Transmission Date: 20080405
  Serious: Yes (Other)
  Sender: FDA-Public Use
  Company Number: PHNU2007DE01617

PATIENT
  Sex: Female

DRUGS (7)
  1. ZOMETA [Suspect]
     Dosage: 4 MG, UNK
     Route: 042
     Dates: start: 20030401, end: 20070201
  2. RADIOTHERAPY [Concomitant]
  3. HERCEPTIN [Concomitant]
     Indication: BREAST CANCER
     Dosage: 25 UG/M2, UNK
     Dates: start: 20030401, end: 20040401
  4. HERCEPTIN [Concomitant]
     Dosage: 6 UG/KG, TIW
     Dates: start: 20040401, end: 20050101
  5. NAVELBINE [Concomitant]
     Indication: BREAST CANCER
     Dosage: 25 UG/M2, UNK
     Dates: start: 20030401, end: 20040401
  6. TAXOTERE [Concomitant]
     Indication: BREAST CANCER
     Dosage: 30 UG/M2, UNK
     Dates: start: 20050501, end: 20051001
  7. MEGESTAT [Concomitant]
     Indication: BREAST CANCER
     Dosage: 160 UG, QD
     Dates: start: 20051201, end: 20070301

REACTIONS (8)
  - BONE DISORDER [None]
  - GENERAL ANAESTHESIA [None]
  - NEUROLYSIS [None]
  - OSTEONECROSIS [None]
  - OSTEOTOMY [None]
  - PLASTIC SURGERY [None]
  - PRIMARY SEQUESTRUM [None]
  - SEQUESTRECTOMY [None]
